FAERS Safety Report 11096086 (Version 2)
Quarter: 2015Q2

REPORT INFORMATION
  Report Type: Spontaneous
  Country: ES (occurrence: None)
  Receive Date: 20150505
  Receipt Date: 20150515
  Transmission Date: 20150821
  Serious: Yes (Other)
  Sender: FDA-Public Use
  Company Number: 2015ES003759

PATIENT
  Age: 83 Year
  Sex: Male

DRUGS (1)
  1. ELIGARD [Suspect]
     Active Substance: LEUPROLIDE ACETATE
     Indication: PROSTATE CANCER
     Dosage: 45 MG, BIANNUALLY, SUBCUTANEOUS
     Route: 058
     Dates: start: 20150225

REACTIONS (3)
  - Drug administration error [None]
  - Blood testosterone abnormal [None]
  - Wrong technique in drug usage process [None]
